FAERS Safety Report 4682872-9 (Version None)
Quarter: 2005Q2

REPORT INFORMATION
  Report Type: 
  Country: None (occurrence: None)
  Receive Date: 20050602
  Receipt Date: 20050421
  Transmission Date: 20051028
  Serious: No
  Sender: FDA-Public Use
  Company Number: USA050496347

PATIENT
  Age: 38 Year
  Sex: Female

DRUGS (3)
  1. CYMBALTA [Suspect]
     Indication: POSTPARTUM DEPRESSION
     Dosage: 60 MG DAY
     Dates: start: 20050414
  2. FLONASE [Concomitant]
  3. PROPRANOLOL [Concomitant]

REACTIONS (1)
  - CHEST DISCOMFORT [None]
